FAERS Safety Report 8818653 (Version 1)
Quarter: 2012Q4

REPORT INFORMATION
  Report Type: 
  Country: US (occurrence: US)
  Receive Date: 20121002
  Receipt Date: 20121002
  Transmission Date: 20130627
  Serious: Yes (Other)
  Sender: FDA-Public Use
  Company Number: US-COVIDIEN/TYCO HEALTHCARE/MALLINCKRODT-T201102939

PATIENT

DRUGS (1)
  1. EXALGO EXTENDED RELEASE [Suspect]
     Dosage: UNK

REACTIONS (1)
  - Convulsion [Unknown]
